FAERS Safety Report 9240293 (Version 1)
Quarter: 2013Q2

REPORT INFORMATION
  Report Type: Spontaneous
  Country: GB (occurrence: None)
  Receive Date: 20130417
  Receipt Date: 20130417
  Transmission Date: 20140414
  Serious: Yes (Hospitalization)
  Sender: FDA-Public Use
  Company Number: 1667484

PATIENT
  Sex: Female

DRUGS (2)
  1. (OXALIPLATIN) [Suspect]
     Indication: CARCINOID TUMOUR OF THE CAECUM
     Dosage: CYCLICAL
  2. FLUOROURACIL [Suspect]
     Dosage: CYCLICAL

REACTIONS (1)
  - Posterior reversible encephalopathy syndrome [None]
